FAERS Safety Report 5330264-1 (Version None)
Quarter: 2007Q2

REPORT INFORMATION
  Report Type: 
  Country: None (occurrence: None)
  Receive Date: 20070521
  Receipt Date: 20070507
  Transmission Date: 20071010
  Serious: Yes (Hospitalization)
  Sender: FDA-Public Use
  Company Number: US-ELI_LILLY_AND_COMPANY-US200609000587

PATIENT
  Sex: Female

DRUGS (4)
  1. BYETTA [Suspect]
     Indication: DIABETES MELLITUS
     Dosage: 5 UG, 2/D
     Route: 058
     Dates: start: 20060819, end: 20060822
  2. GLUCOPHAGE [Concomitant]
     Dosage: 850 MG, 2/D
     Route: 065
     Dates: end: 20060822
  3. AVANDIA [Concomitant]
     Dosage: UNK, 2/D
     Route: 065
     Dates: end: 20060822
  4. GLIMEPIRIDE [Concomitant]
     Dosage: UNK, 2/D
     Route: 065
     Dates: end: 20060822

REACTIONS (13)
  - BLOOD GLUCOSE DECREASED [None]
  - BLOOD PRESSURE DECREASED [None]
  - CHILLS [None]
  - DIARRHOEA [None]
  - DYSPNOEA [None]
  - FEELING ABNORMAL [None]
  - INJECTION SITE ERYTHEMA [None]
  - INJECTION SITE PAIN [None]
  - INJECTION SITE SWELLING [None]
  - MUSCLE SPASMS [None]
  - PYREXIA [None]
  - TREMOR [None]
  - URTICARIA GENERALISED [None]
